FAERS Safety Report 15253386 (Version 1)
Quarter: 2018Q3

REPORT INFORMATION
  Report Type: Report from Study
  Country: JP (occurrence: JP)
  Receive Date: 20180808
  Receipt Date: 20180808
  Transmission Date: 20181010
  Serious: Yes (Hospitalization, Other)
  Sender: FDA-Public Use
  Company Number: JP-SUN PHARMACEUTICAL INDUSTRIES LTD-2018RR-180802

PATIENT
  Sex: Male

DRUGS (7)
  1. MELPHALAN. [Suspect]
     Active Substance: MELPHALAN
     Indication: INTRACRANIAL GERM CELL TUMOUR
     Dosage: 70 MG/M2, DAILY, FROM DAY ?4 TO ?3, 1 CYCLE
     Route: 065
  2. ETOPOSIDE. [Suspect]
     Active Substance: ETOPOSIDE
     Indication: INTRACRANIAL GERM CELL TUMOUR
     Dosage: 4 CYCLES
     Route: 065
  3. ETOPOSIDE. [Suspect]
     Active Substance: ETOPOSIDE
     Dosage: 200 MG/M2, DAILY, FROM DAY ?8 TO ?5; 1 CYCLE
     Route: 065
  4. TEMOZOLOMIDE. [Suspect]
     Active Substance: TEMOZOLOMIDE
     Indication: INTRACRANIAL GERM CELL TUMOUR
     Route: 065
  5. IFOSFAMIDE. [Suspect]
     Active Substance: IFOSFAMIDE
     Indication: INTRACRANIAL GERM CELL TUMOUR
     Dosage: 4 CYCLES
     Route: 065
  6. CARBOPLATIN. [Suspect]
     Active Substance: CARBOPLATIN
     Indication: INTRACRANIAL GERM CELL TUMOUR
     Dosage: 4 CYCLES
     Route: 065
  7. CARBOPLATIN. [Suspect]
     Active Substance: CARBOPLATIN
     Dosage: 400 MG/M2, DAILY, FROM DAY ?8 TO ?6; 1 CYCLE
     Route: 065

REACTIONS (4)
  - Neoplasm recurrence [Unknown]
  - Hypopituitarism [Recovering/Resolving]
  - Hypokalaemia [Unknown]
  - Diabetes insipidus [Recovering/Resolving]
